FAERS Safety Report 22273434 (Version 2)
Quarter: 2023Q2

REPORT INFORMATION
  Report Type: Spontaneous
  Country: CO (occurrence: CO)
  Receive Date: 20230502
  Receipt Date: 20230524
  Transmission Date: 20230722
  Serious: Yes (Hospitalization, Other)
  Sender: FDA-Public Use
  Company Number: CO-GLAXOSMITHKLINE-CO2023AMR062076

PATIENT

DRUGS (6)
  1. BELIMUMAB [Suspect]
     Active Substance: BELIMUMAB
     Indication: Systemic lupus erythematosus
     Dosage: 800 MG, MO
     Dates: start: 20210503
  2. HYDROXYCHLOROQUINE [Concomitant]
     Active Substance: HYDROXYCHLOROQUINE
     Indication: Product used for unknown indication
     Dosage: 200 MG, QD
  3. PREDNISOLONE [Concomitant]
     Active Substance: PREDNISOLONE
     Indication: Product used for unknown indication
     Dosage: 10 MG, BID
  4. CALCIUM CITRATE + VITAMIN D [Concomitant]
     Indication: Product used for unknown indication
     Dosage: UNK, QD 1500 MG/200 IU
  5. NIMESULIDE [Concomitant]
     Active Substance: NIMESULIDE
     Indication: Product used for unknown indication
     Dosage: 100 MG, QD
  6. BIOTIN SUPPLEMENT [Concomitant]
     Indication: Product used for unknown indication
     Dosage: UNK, QD

REACTIONS (3)
  - Pulmonary embolism [Not Recovered/Not Resolved]
  - Pulmonary infarction [Not Recovered/Not Resolved]
  - Surgery [Unknown]

NARRATIVE: CASE EVENT DATE: 20230413
